FAERS Safety Report 6719967-1 (Version None)
Quarter: 2010Q2

REPORT INFORMATION
  Report Type: 
  Country: None (occurrence: None)
  Receive Date: 20100507
  Receipt Date: 20100425
  Transmission Date: 20101027
  Serious: Yes (Hospitalization)
  Sender: FDA-Public Use
  Company Number: 8053535

PATIENT
  Sex: Male
  Weight: 75 kg

DRUGS (11)
  1. CERTOLIZUMAB PEGOL (CERTOLIZUMAB PEGOL) [Suspect]
     Indication: RHEUMATOID ARTHRITIS
     Dosage: 400 MG 1X/2 WEEKS SUBCUTANEOUS, 400 MG 1X/2 WEEKS SUBCUTANEOUS
     Route: 058
     Dates: start: 20050815, end: 20060731
  2. CERTOLIZUMAB PEGOL (CERTOLIZUMAB PEGOL) [Suspect]
     Indication: RHEUMATOID ARTHRITIS
     Dosage: 400 MG 1X/2 WEEKS SUBCUTANEOUS, 400 MG 1X/2 WEEKS SUBCUTANEOUS
     Route: 058
     Dates: start: 20060414
  3. METHORTEXATE [Concomitant]
  4. FOLIC ACID [Concomitant]
  5. ATENOLOL [Concomitant]
  6. REMETHAN [Concomitant]
  7. AMLODIPINE [Concomitant]
  8. CARTIA /00002701/ [Concomitant]
  9. SIMVASTATIN [Concomitant]
  10. OMERPRAZOLE [Concomitant]
  11. CALCIUM [Concomitant]

REACTIONS (2)
  - BRONCHITIS [None]
  - RHINORRHOEA [None]
